FAERS Safety Report 6814461-1 (Version None)
Quarter: 2010Q3

REPORT INFORMATION
  Report Type: 
  Country: None (occurrence: None)
  Receive Date: 20100702
  Receipt Date: 20100621
  Transmission Date: 20110219
  Serious: Yes (Hospitalization)
  Sender: FDA-Public Use
  Company Number: PHHY2010US40867

PATIENT
  Sex: Female
  Weight: 63.05 kg

DRUGS (7)
  1. EXJADE [Suspect]
     Indication: MYELODYSPLASTIC SYNDROME
     Dosage: 1500 MG/DAY
     Route: 048
     Dates: start: 20100607
  2. SYNTHROID [Concomitant]
  3. ALKERAN [Concomitant]
  4. TOPROL-XL [Concomitant]
  5. VYTORIN [Concomitant]
  6. POTASSIUM [Concomitant]
  7. LASIX [Concomitant]

REACTIONS (2)
  - DEHYDRATION [None]
  - LOSS OF CONSCIOUSNESS [None]
